FAERS Safety Report 5315854-4 (Version None)
Quarter: 2007Q2

REPORT INFORMATION
  Report Type: 
  Country: None (occurrence: None)
  Receive Date: 20070503
  Receipt Date: 20070424
  Transmission Date: 20071010
  Serious: Yes (Hospitalization)
  Sender: FDA-Public Use
  Company Number: FR-JNJFOC-20070404788

PATIENT
  Age: 83 Year
  Sex: Male

DRUGS (5)
  1. TAVANIC [Suspect]
     Indication: DRUG USE FOR UNKNOWN INDICATION
     Route: 048
     Dates: start: 20070208, end: 20070209
  2. DIGOXIN [Suspect]
     Indication: DRUG USE FOR UNKNOWN INDICATION
     Route: 048
  3. CORDARONE [Suspect]
     Indication: DRUG USE FOR UNKNOWN INDICATION
     Route: 048
  4. VASTAREL [Concomitant]
     Route: 048
  5. BETASERC [Concomitant]
     Route: 048

REACTIONS (2)
  - BRADYCARDIA [None]
  - ELECTROCARDIOGRAM QT PROLONGED [None]
